FAERS Safety Report 5329866-8 (Version None)
Quarter: 2007Q2

REPORT INFORMATION
  Report Type: 
  Country: None (occurrence: None)
  Receive Date: 20070517
  Receipt Date: 20070517
  Transmission Date: 20071010
  Serious: No
  Sender: FDA-Public Use
  Company Number: None

PATIENT
  Age: 46 Year
  Sex: Female
  Weight: 87 kg

DRUGS (12)
  1. TARCEVA [Suspect]
     Indication: PANCREATIC CARCINOMA
     Dosage: 100 MG DAILY PO
     Route: 048
     Dates: start: 20070419, end: 20070509
  2. LISINOPRIL [Concomitant]
  3. SENNA [Concomitant]
  4. SIMVASTATIN [Concomitant]
  5. EFFEXOR [Concomitant]
  6. OXYCODONE HCL [Concomitant]
  7. ALBUTEROL [Concomitant]
  8. GLUCOPHAGE [Concomitant]
  9. AMITRIPTYLINE HCL [Concomitant]
  10. NEURONTIN [Concomitant]
  11. PHENERGAN HCL [Concomitant]
  12. PROTONIX [Concomitant]

REACTIONS (3)
  - DISEASE PROGRESSION [None]
  - RASH ERYTHEMATOUS [None]
  - RASH MACULAR [None]
